FAERS Safety Report 6668387-7 (Version None)
Quarter: 2010Q2

REPORT INFORMATION
  Report Type: 
  Country: None (occurrence: None)
  Receive Date: 20100406
  Receipt Date: 20100322
  Transmission Date: 20101027
  Serious: Yes (Hospitalization)
  Sender: FDA-Public Use
  Company Number: PHHY2010AR09896

PATIENT
  Sex: Male
  Weight: 85 kg

DRUGS (4)
  1. ALISKIREN ALI+TAB+HT [Suspect]
     Dosage: 150 MG, DAILY
     Route: 048
     Dates: start: 20091029
  2. CARVEDILOL [Suspect]
     Dosage: 25 MG, DAILY
     Route: 048
     Dates: start: 20091020
  3. ASPIRIN [Concomitant]
     Indication: THROMBOSIS
     Dosage: 100 MG, UNK
  4. CILOSTAZOL [Concomitant]
     Indication: VASODILATION PROCEDURE
     Dosage: 100 MG, UNK

REACTIONS (6)
  - ARTERIAL STENOSIS LIMB [None]
  - ESCHAROTOMY [None]
  - FEMORAL ARTERIAL STENOSIS [None]
  - SKIN NECROSIS [None]
  - SKIN ULCER [None]
  - TENDON OPERATION [None]
